FAERS Safety Report 4849853-3 (Version None)
Quarter: 2005Q4

REPORT INFORMATION
  Report Type: 
  Country: None (occurrence: None)
  Receive Date: 20051114
  Receipt Date: 20050119
  Transmission Date: 20060501
  Serious: Yes (Hospitalization)
  Sender: FDA-Public Use
  Company Number: 050124-0000563

PATIENT
  Age: 42 Month
  Sex: Male
  Weight: 15 kg

DRUGS (2)
  1. PENTOBARBITAL SODIUM [Suspect]
     Indication: SEDATION
     Dosage: 4 MG/KG;1X;IVBOL
     Route: 040
  2. PENTOBARBITAL SODIUM [Suspect]
     Dosage: 1.4 MG/KG;QH;IVDRP
     Route: 041

REACTIONS (3)
  - CHOREOATHETOSIS [None]
  - COORDINATION ABNORMAL [None]
  - MUSCLE TWITCHING [None]
